FAERS Safety Report 4964974-2 (Version None)
Quarter: 2006Q2

REPORT INFORMATION
  Report Type: 
  Country: None (occurrence: None)
  Receive Date: 20060403
  Receipt Date: 20060106
  Transmission Date: 20061013
  Serious: Yes (Other)
  Sender: FDA-Public Use
  Company Number: CAN-2006-0000311

PATIENT
  Sex: Male

DRUGS (1)
  1. OXYCONTIN [Suspect]
     Dosage: 80 MIG, TID, ORAL
     Route: 048

REACTIONS (2)
  - DRY MOUTH [None]
  - TOOTH DISORDER [None]
